FAERS Safety Report 8524205-3 (Version None)
Quarter: 2012Q3

REPORT INFORMATION
  Report Type: 
  Country: None (occurrence: None)
  Receive Date: 20120716
  Receipt Date: 20120716
  Transmission Date: 20120928
  Serious: Yes (Hospitalization)
  Sender: FDA-Public Use
  Company Number: None

PATIENT
  Age: 19 Year
  Sex: Female
  Weight: 72.5755 kg

DRUGS (2)
  1. HALOPERIDOL [Suspect]
     Indication: HALLUCINATION
     Dosage: .5 TABLET EVERY 6 HRS. PRN PO
     Route: 048
     Dates: start: 20120702, end: 20120712
  2. ZIPRASIDONE HCL [Suspect]
     Indication: MOOD ALTERED
     Dosage: 1 CAPSULE, AND 2 CAPSULES AM, AND 6-P.M. PO
     Route: 048
     Dates: start: 20120702, end: 20120713

REACTIONS (1)
  - ADVERSE EVENT [None]
